FAERS Safety Report 5669675-3 (Version None)
Quarter: 2008Q1

REPORT INFORMATION
  Report Type: 
  Country: None (occurrence: None)
  Receive Date: 20080312
  Receipt Date: 20080312
  Transmission Date: 20080703
  Serious: No
  Sender: FDA-Public Use
  Company Number: None

PATIENT
  Age: 46 Year
  Sex: Female
  Weight: 58.9676 kg

DRUGS (1)
  1. LEVAQUIN [Suspect]
     Indication: PHARYNGITIS BACTERIAL
     Dosage: ONCE A DAY
     Dates: start: 20080308, end: 20080310

REACTIONS (2)
  - INSOMNIA [None]
  - URTICARIA [None]
